FAERS Safety Report 17241725 (Version 1)
Quarter: 2020Q1

REPORT INFORMATION
  Report Type: Spontaneous
  Country: CA (occurrence: CA)
  Receive Date: 20200107
  Receipt Date: 20200107
  Transmission Date: 20200409
  Serious: Yes (Hospitalization, Other)
  Sender: FDA-Public Use
  Company Number: CA-PFIZER INC-2020001754

PATIENT
  Age: 13 Year
  Sex: Male
  Weight: 60 kg

DRUGS (13)
  1. METHOTREXATE SODIUM. [Suspect]
     Active Substance: METHOTREXATE SODIUM
     Indication: ACUTE LYMPHOCYTIC LEUKAEMIA
     Dosage: 40 MG/M2, UNK
     Route: 042
  2. ASPARAGINASE [Concomitant]
     Active Substance: ASPARAGINASE
  3. DEXAMETHASONE. [Concomitant]
     Active Substance: DEXAMETHASONE
  4. MERCAPTOPURINE. [Concomitant]
     Active Substance: MERCAPTOPURINE
  5. PEG-L-ASPARAGINASE [Concomitant]
     Active Substance: PEGASPARGASE
  6. PREDNISONE. [Concomitant]
     Active Substance: PREDNISONE
  7. CYTARABINE. [Concomitant]
     Active Substance: CYTARABINE
  8. DOXORUBICIN [Concomitant]
     Active Substance: DOXORUBICIN
  9. ETOPOSIDE. [Concomitant]
     Active Substance: ETOPOSIDE
  10. CYCLOPHOSPHAMIDE. [Concomitant]
     Active Substance: CYCLOPHOSPHAMIDE
  11. CYTARABINE. [Concomitant]
     Active Substance: CYTARABINE
  12. METHYLPREDNISOLONE. [Concomitant]
     Active Substance: METHYLPREDNISOLONE
  13. VINCRISTINE SULFATE. [Concomitant]
     Active Substance: VINCRISTINE SULFATE

REACTIONS (4)
  - Osteonecrosis of jaw [Recovering/Resolving]
  - Mucosal inflammation [Recovering/Resolving]
  - Stomatitis necrotising [Recovering/Resolving]
  - Toxicity to various agents [Recovering/Resolving]
